FAERS Safety Report 9021997 (Version 4)
Quarter: 2013Q2

REPORT INFORMATION
  Report Type: Spontaneous
  Country: BR (occurrence: BR)
  Receive Date: 20130118
  Receipt Date: 20130523
  Transmission Date: 20140414
  Serious: Yes (Hospitalization, Other)
  Sender: FDA-Public Use
  Company Number: BR-BRISTOL-MYERS SQUIBB COMPANY-17277427

PATIENT
  Age: 70 Year
  Sex: Male
  Weight: 80 kg

DRUGS (1)
  1. SPRYCEL (CML) TABS [Suspect]
     Route: 048

REACTIONS (10)
  - Hernia [Unknown]
  - Pneumonia [Unknown]
  - Weight increased [Unknown]
  - Pain [Unknown]
  - Wound [Unknown]
  - Platelet count decreased [Unknown]
  - Weight decreased [Unknown]
  - Anaemia [Unknown]
  - Tooth disorder [Unknown]
  - Blood pressure increased [Recovering/Resolving]
